FAERS Safety Report 4553048-0 (Version None)
Quarter: 2005Q1

REPORT INFORMATION
  Report Type: 
  Country: None (occurrence: None)
  Receive Date: 20050113
  Receipt Date: 20050104
  Transmission Date: 20050727
  Serious: Yes (Other)
  Sender: FDA-Public Use
  Company Number: 2005007747

PATIENT
  Age: 35 Year
  Sex: Male

DRUGS (12)
  1. NELFINAVIR MESILATE (NELFINAVIR MESILATE) [Suspect]
     Indication: HIV INFECTION
  2. LAMIVUDINE (LAMIVUDINE) [Suspect]
     Indication: HIV INFECTION
  3. ZIDOVUDINE [Suspect]
     Indication: HIV INFECTION
     Dosage: 100 MG
  4. PENTAMIDINE (PENTAMIDINE) [Concomitant]
  5. BACTRIM [Concomitant]
  6. RIFAMPICIN [Concomitant]
  7. ISONIAZID [Concomitant]
  8. PYRAZINAMIDE [Concomitant]
  9. ETHAMBUTOL (ETHAMBUTOL) [Concomitant]
  10. CLARITHROMYCIN [Concomitant]
  11. CIPROFLOXACIN [Concomitant]
  12. RIFABUTIN (RIFABUTIN) [Concomitant]

REACTIONS (5)
  - ATYPICAL MYCOBACTERIAL INFECTION [None]
  - CANDIDIASIS [None]
  - IMMUNE RECONSTITUTION SYNDROME [None]
  - MUCOSAL INFLAMMATION [None]
  - PNEUMOCYSTIS JIROVECI PNEUMONIA [None]
